FAERS Safety Report 14507571 (Version 5)
Quarter: 2018Q4

REPORT INFORMATION
  Report Type: Report from Study
  Country: US (occurrence: US)
  Receive Date: 20180208
  Receipt Date: 20181123
  Transmission Date: 20190204
  Serious: Yes (Hospitalization)
  Sender: FDA-Public Use
  Company Number: US-ACTELION-A-NJ2018-167017

PATIENT
  Age: 22 Year
  Sex: Female
  Weight: 57.14 kg

DRUGS (1)
  1. OPSUMIT [Suspect]
     Active Substance: MACITENTAN
     Indication: PULMONARY HYPERTENSION
     Dosage: 10 MG, QD
     Route: 048

REACTIONS (4)
  - Dyspnoea [Unknown]
  - Hyponatraemia [Unknown]
  - Pneumonia [Unknown]
  - Blood sodium decreased [Unknown]
